FAERS Safety Report 8322482-5 (Version None)
Quarter: 2012Q2

REPORT INFORMATION
  Report Type: 
  Country: None (occurrence: None)
  Receive Date: 20120430
  Receipt Date: 20100126
  Transmission Date: 20120825
  Serious: No
  Sender: FDA-Public Use
  Company Number: US-TEVA-2010000488

PATIENT
  Sex: Female
  Weight: 63.56 kg

DRUGS (2)
  1. NUVIGIL [Suspect]
     Indication: DEPRESSED LEVEL OF CONSCIOUSNESS
     Dosage: 250 MILLIGRAM;
     Route: 048
     Dates: start: 20091201, end: 20100101
  2. WELLBUTRIN [Concomitant]
     Dates: start: 20080101

REACTIONS (1)
  - FEELING JITTERY [None]
